FAERS Safety Report 6419784-6 (Version None)
Quarter: 2009Q4

REPORT INFORMATION
  Report Type: 
  Country: None (occurrence: None)
  Receive Date: 20091013
  Receipt Date: 20090630
  Transmission Date: 20100525
  Serious: Yes (Other)
  Sender: FDA-Public Use
  Company Number: 1000001674

PATIENT
  Age: 30 Year
  Sex: Female
  Weight: 113.3993 kg

DRUGS (17)
  1. LEXAPRO [Suspect]
     Indication: ANXIETY
     Dosage: 10 MG (10 MG, 1 IN 1 D), ORAL
     Route: 048
     Dates: start: 20080401, end: 20081110
  2. LEXAPRO [Suspect]
     Indication: DEPRESSION
     Dosage: 10 MG (10 MG, 1 IN 1 D), ORAL
     Route: 048
     Dates: start: 20080401, end: 20081110
  3. LEXAPRO [Suspect]
     Indication: ANXIETY
     Dosage: 10 MG (10 MG, 1 QOD), ORAL
     Route: 048
     Dates: start: 20081111
  4. LEXAPRO [Suspect]
     Indication: DEPRESSION
     Dosage: 10 MG (10 MG, 1 QOD), ORAL
     Route: 048
     Dates: start: 20081111
  5. ENLAVIL [Suspect]
     Indication: FIBROMYALGIA
     Dosage: 10 MG (10 MG, 1 IN 1 D), ORAL
     Route: 048
     Dates: start: 20080101, end: 20080401
  6. TRAMADOL HCL [Suspect]
     Indication: ARTHRITIS
     Dosage: 50 MG (50 MG, 1 IN 1 D), ORAL
     Route: 048
     Dates: end: 20081001
  7. FLEXERIL [Suspect]
     Indication: ARTHRITIS
     Dosage: 10 MG (10 MG, 1 IN 1 D), ORAL
     Route: 048
     Dates: end: 20081001
  8. PHENERGAN HCL [Concomitant]
  9. DARVOCET [Concomitant]
  10. PROPRANOLOL [Concomitant]
  11. METFORMIN HCL [Concomitant]
  12. XANAX [Concomitant]
  13. SYNTHROID [Concomitant]
  14. TRI-SPRINTEC [Concomitant]
  15. HYDROCHLOROTHIAZE [Concomitant]
  16. WELLBUTRIN XL [Concomitant]
  17. CENTRUM [Concomitant]

REACTIONS (12)
  - DECREASED APPETITE [None]
  - DRUG INTERACTION [None]
  - EYE MOVEMENT DISORDER [None]
  - FOOD CRAVING [None]
  - HEADACHE [None]
  - NAUSEA [None]
  - PRURITUS GENERALISED [None]
  - SUICIDAL IDEATION [None]
  - TREMOR [None]
  - VISUAL IMPAIRMENT [None]
  - VOMITING [None]
  - WEIGHT INCREASED [None]
